FAERS Safety Report 8581948-3 (Version None)
Quarter: 2012Q2

REPORT INFORMATION
  Report Type: 
  Country: None (occurrence: None)
  Receive Date: 20120423
  Receipt Date: 20100728
  Transmission Date: 20120825
  Serious: Yes (Hospitalization)
  Sender: FDA-Public Use
  Company Number: PHHY2010US49645

PATIENT
  Age: 58 Year
  Sex: Female

DRUGS (1)
  1. EXJADE [Suspect]

REACTIONS (1)
  - ANAEMIA [None]
